FAERS Safety Report 10176730 (Version 2)
Quarter: 2014Q2

REPORT INFORMATION
  Report Type: Spontaneous
  Country: IS (occurrence: IS)
  Receive Date: 20140516
  Receipt Date: 20140529
  Transmission Date: 20141212
  Serious: Yes (Life-Threatening, Hospitalization)
  Sender: FDA-Public Use
  Company Number: IS-BRISTOL-MYERS SQUIBB COMPANY-20721411

PATIENT
  Sex: Male

DRUGS (3)
  1. FORXIGA [Suspect]
     Indication: DIABETES MELLITUS
     Dates: start: 201403, end: 201403
  2. NOVORAPID [Concomitant]
     Indication: DIABETES MELLITUS
  3. LANTUS [Concomitant]
     Indication: DIABETES MELLITUS

REACTIONS (1)
  - Ketoacidosis [Unknown]
